FAERS Safety Report 4611909-8 (Version None)
Quarter: 2005Q2

REPORT INFORMATION
  Report Type: 
  Country: None (occurrence: None)
  Receive Date: 20050308
  Receipt Date: 20041215
  Transmission Date: 20051028
  Serious: Yes (Other)
  Sender: FDA-Public Use
  Company Number: 2004UW25513

PATIENT
  Age: 58 Year
  Sex: Male
  Weight: 90.718 kg

DRUGS (1)
  1. CRESTOR [Suspect]
     Indication: HYPERCHOLESTEROLAEMIA
     Dosage: 10 MG PO
     Route: 048
     Dates: start: 20041101

REACTIONS (2)
  - BODY TEMPERATURE INCREASED [None]
  - MYALGIA [None]
